FAERS Safety Report 24362625 (Version 3)
Quarter: 2024Q4

REPORT INFORMATION
  Report Type: Spontaneous
  Country: US (occurrence: US)
  Receive Date: 20240925
  Receipt Date: 20241113
  Transmission Date: 20250115
  Serious: Yes (Death)
  Sender: PFIZER
  Company Number: US-PFIZER INC-PV202400125239

PATIENT
  Age: 74 Year
  Sex: Female
  Weight: 73.47 kg

DRUGS (16)
  1. XELJANZ XR [Suspect]
     Active Substance: TOFACITINIB CITRATE
     Indication: Rheumatoid arthritis
     Dosage: 11 MG, 1X/DAY
     Route: 048
     Dates: start: 20230822
  2. OLMESARTAN [Concomitant]
     Active Substance: OLMESARTAN
     Dosage: TAKE 2 TABLET, EVERY DAY
     Route: 048
  3. PRAVASTATIN [Concomitant]
     Active Substance: PRAVASTATIN
     Dosage: 40 MG, 1X/DAY
     Route: 048
  4. TRIAMCINOLONE ACETONIDE [Concomitant]
     Active Substance: TRIAMCINOLONE ACETONIDE
     Dosage: APPLY TO AFFECTED AREAS OF GROIN TWICE DAILY FOR 2 WEEKS
     Route: 061
  5. LYRICA [Concomitant]
     Active Substance: PREGABALIN
     Dosage: TAKE 5 CAPSULE, EVERY DAY
     Route: 048
  6. NYSTATIN [Concomitant]
     Active Substance: NYSTATIN
     Dosage: APPLY BY TOPICAL ROUTE 2 TIMES EVERY DAY TO THE AFFECTED AREA(S)
     Route: 061
  7. VITAMIN D3 [Concomitant]
     Active Substance: CHOLECALCIFEROL
     Dosage: USE AS DIRECTED
  8. VALACYCLOVIR [Concomitant]
     Active Substance: VALACYCLOVIR HYDROCHLORIDE
     Dosage: TAKE 1 TABLET BY MOUTH 1 TO 3 TIMES DAILY AS NEEDED
     Route: 048
  9. PROLIA [Concomitant]
     Active Substance: DENOSUMAB
     Dosage: INJECT 1 ML, EVERY 6 MONTHS IN THE UPPER ARM, UPPER THIGH OR ABDOMEN
     Route: 058
  10. PREDNISONE [Concomitant]
     Active Substance: PREDNISONE
     Dosage: 5 MG, 1X/DAY
     Route: 048
  11. DULOXETINE [Concomitant]
     Active Substance: DULOXETINE
     Dosage: 30 MG, 2X/DAY
     Route: 048
  12. LEFLUNOMIDE [Concomitant]
     Active Substance: LEFLUNOMIDE
     Dosage: 20 MG, 1X/DAY
     Route: 048
  13. LIDOCAINE [Concomitant]
     Active Substance: LIDOCAINE
     Dosage: APPLY ONE TO THREE PATCHES TO AFFECTED AREAS AS NEEDED. WEAR FOR 12 HOURS THEN REMOVE FOR 12 HOURS
     Route: 061
  14. PREMARIN [Concomitant]
     Active Substance: ESTROGENS, CONJUGATED
     Dosage: APPLY 2-3 TIMES A WEEK PEA SIZED AMOUNT
     Route: 067
  15. TIZANIDINE [Concomitant]
     Active Substance: TIZANIDINE
     Dosage: TAKE 1 TABLET THREE TIMES A DAY AS NEEDED
     Route: 048
  16. ACETAMINOPHEN\HYDROCODONE [Concomitant]
     Active Substance: ACETAMINOPHEN\HYDROCODONE
     Dosage: TAKE 1 TABLET EVERY 4 HOURS AS NEEDED
     Route: 048

REACTIONS (1)
  - Post procedural complication [Fatal]

NARRATIVE: CASE EVENT DATE: 20240910
